FAERS Safety Report 13930792 (Version 2)
Quarter: 2017Q3

REPORT INFORMATION
  Report Type: Spontaneous
  Country: US (occurrence: US)
  Receive Date: 20170901
  Receipt Date: 20170908
  Transmission Date: 20171127
  Serious: Yes (Hospitalization, Other)
  Sender: FDA-Public Use
  Company Number: US-GILEAD-2017-0290099

PATIENT
  Age: 50 Year
  Sex: Female

DRUGS (30)
  1. TRAZODONE HYDROCHLORIDE. [Concomitant]
     Active Substance: TRAZODONE HYDROCHLORIDE
  2. FOLIC ACID. [Concomitant]
     Active Substance: FOLIC ACID
  3. HALCINONIDE [Concomitant]
     Active Substance: HALCINONIDE
  4. CETIRIZINE HYDROCHLORIDE. [Concomitant]
     Active Substance: CETIRIZINE HYDROCHLORIDE
  5. SYNTHROID [Concomitant]
     Active Substance: LEVOTHYROXINE SODIUM
  6. INOSITOL NICOTINATE [Concomitant]
  7. LOMOTIL [Concomitant]
     Active Substance: ATROPINE SULFATE\DIPHENOXYLATE HYDROCHLORIDE
  8. HYDROCORTISONE. [Concomitant]
     Active Substance: HYDROCORTISONE
  9. BUPROPION HYDROCHLORIDE. [Concomitant]
     Active Substance: BUPROPION HYDROCHLORIDE
  10. ESOMEPRAZOLE MAGNESIUM. [Concomitant]
     Active Substance: ESOMEPRAZOLE MAGNESIUM
  11. BUDESONIDE. [Concomitant]
     Active Substance: BUDESONIDE
  12. REPATHA [Suspect]
     Active Substance: EVOLOCUMAB
     Indication: HYPERCHOLESTEROLAEMIA
     Dosage: 140 MG, Q2WK
     Route: 058
     Dates: start: 201510, end: 201608
  13. TRAMADOL HYDROCHLORIDE. [Concomitant]
     Active Substance: TRAMADOL HYDROCHLORIDE
  14. TOPROL XL [Concomitant]
     Active Substance: METOPROLOL SUCCINATE
  15. MELATONIN [Concomitant]
     Active Substance: MELATONIN
  16. METHOCARBAMOL. [Concomitant]
     Active Substance: METHOCARBAMOL
  17. BRISDELLE [Concomitant]
     Active Substance: PAROXETINE MESYLATE
  18. CLOPIDOGREL BISULFATE. [Concomitant]
     Active Substance: CLOPIDOGREL BISULFATE
  19. COENZYME Q10 [Concomitant]
     Active Substance: UBIDECARENONE
  20. CLOTRIMAZOLE. [Concomitant]
     Active Substance: CLOTRIMAZOLE
  21. RANEXA [Suspect]
     Active Substance: RANOLAZINE
     Indication: ANGINA PECTORIS
     Dosage: 500 MG, BID
     Route: 048
  22. LIPITOR [Suspect]
     Active Substance: ATORVASTATIN CALCIUM
     Indication: TYPE IIA HYPERLIPIDAEMIA
     Dosage: 20 MG, QD
     Route: 048
     Dates: start: 201511
  23. FISH OIL [Concomitant]
     Active Substance: FISH OIL
  24. BIOTIN [Concomitant]
     Active Substance: BIOTIN
  25. NIACIN. [Concomitant]
     Active Substance: NIACIN
  26. METOPROLOL SUCCINATE. [Concomitant]
     Active Substance: METOPROLOL SUCCINATE
  27. ASPIRIN                            /00002701/ [Concomitant]
     Active Substance: ASPIRIN
  28. LEFLUNOMIDE. [Concomitant]
     Active Substance: LEFLUNOMIDE
  29. GABAPENTIN. [Concomitant]
     Active Substance: GABAPENTIN
  30. LISDEXAMFETAMINE MESILATE [Concomitant]
     Active Substance: LISDEXAMFETAMINE DIMESYLATE

REACTIONS (29)
  - Arteriosclerosis coronary artery [Unknown]
  - Muscular weakness [Unknown]
  - Hypoacusis [Unknown]
  - Dyspnoea [Unknown]
  - Muscle fatigue [Unknown]
  - Skin lesion [Unknown]
  - Joint stiffness [Unknown]
  - Burning sensation [Unknown]
  - Headache [Unknown]
  - Dysphagia [Unknown]
  - Angina pectoris [Unknown]
  - Feeling abnormal [Unknown]
  - Pinguecula [Unknown]
  - Cardiac murmur [Unknown]
  - Abdominal pain [Unknown]
  - Hepatic enzyme increased [Unknown]
  - Sinus congestion [Unknown]
  - Catheterisation cardiac [Unknown]
  - Musculoskeletal chest pain [Unknown]
  - Arthralgia [Unknown]
  - Sexual dysfunction [Unknown]
  - Dyspnoea exertional [Unknown]
  - Fatigue [Unknown]
  - Stent placement [Unknown]
  - Sinus disorder [Unknown]
  - Low density lipoprotein increased [Not Recovered/Not Resolved]
  - Weight decreased [Unknown]
  - Eye pruritus [Unknown]
  - Dysuria [Unknown]

NARRATIVE: CASE EVENT DATE: 201608
